FAERS Safety Report 21492816 (Version 2)
Quarter: 2022Q4

REPORT INFORMATION
  Report Type: Spontaneous
  Country: IT (occurrence: None)
  Receive Date: 20221021
  Receipt Date: 20221028
  Transmission Date: 20230113
  Serious: Yes (Other)
  Sender: FDA-Public Use
  Company Number: 2022A324878

PATIENT
  Age: 21855 Day
  Sex: Male

DRUGS (8)
  1. ACALABRUTINIB [Suspect]
     Active Substance: ACALABRUTINIB
     Indication: Chronic lymphocytic leukaemia stage 1
     Route: 048
     Dates: start: 20220413
  2. ACYCLOVIR [Concomitant]
     Active Substance: ACYCLOVIR
     Dosage: 1 TABLET X 2, EVERY 12 HOURS
  3. ALLOPURINOL [Concomitant]
     Active Substance: ALLOPURINOL
     Dosage: 1 TABLET AT 6PM
  4. ERYTHROPOIETIN [Concomitant]
     Active Substance: ERYTHROPOIETIN
     Dosage: 40.000 IU SUBCUTANEOUS VIAL, 1 VIAL SUBCUTANEOUSLY EVERY WEEK
  5. BACTRIM [Concomitant]
     Active Substance: SULFAMETHOXAZOLE\TRIMETHOPRIM
     Dosage: 800+160 MG, 1 TABLET EVERY 12 HOURS 2 TIMES A WEEK
  6. FILGRASTIM [Concomitant]
     Active Substance: FILGRASTIM
     Dosage: 30 MU VIAL, 1 VIAL SUBCUTANEOUSLY EVERY DAY FOR THREE DAYS
     Dates: start: 20221011, end: 20221013
  7. RAMIPRIL [Concomitant]
     Active Substance: RAMIPRIL
  8. ATORVASTATIN [Concomitant]
     Active Substance: ATORVASTATIN

REACTIONS (3)
  - Malignant neoplasm progression [Unknown]
  - Thrombocytopenia [Not Recovered/Not Resolved]
  - Evans syndrome [Not Recovered/Not Resolved]

NARRATIVE: CASE EVENT DATE: 20220802
